FAERS Safety Report 10228222 (Version 1)
Quarter: 2014Q2

REPORT INFORMATION
  Report Type: Spontaneous
  Country: US (occurrence: US)
  Receive Date: 20140610
  Receipt Date: 20140610
  Transmission Date: 20141212
  Serious: Yes (Other)
  Sender: FDA-Public Use
  Company Number: US-BAYER-2014-082332

PATIENT
  Age: 48 Year
  Sex: Female

DRUGS (1)
  1. MIRENA [Suspect]
     Indication: CONTRACEPTION
     Dosage: 20 ?G/D, CONT
     Route: 015
     Dates: start: 20111116

REACTIONS (5)
  - Menorrhagia [None]
  - Device physical property issue [None]
  - Device dislocation [Not Recovered/Not Resolved]
  - Menstrual disorder [None]
  - Uterine haemorrhage [None]
